FAERS Safety Report 18047026 (Version 2)
Quarter: 2020Q3

REPORT INFORMATION
  Report Type: Spontaneous
  Country: IT (occurrence: IT)
  Receive Date: 20200721
  Receipt Date: 20200807
  Transmission Date: 20201103
  Serious: Yes (Other)
  Sender: FDA-Public Use
  Company Number: IT-ALKEM LABORATORIES LIMITED-IT-ALKEM-2020-03645

PATIENT
  Age: 8 Month
  Sex: Male
  Weight: 1.6 kg

DRUGS (2)
  1. VANCOMYCIN [Concomitant]
     Active Substance: VANCOMYCIN
     Indication: MENINGITIS STAPHYLOCOCCAL
     Dosage: 15 MG/KG, FOUR TIMES IN A DAY
     Route: 065
  2. LINEZOLID. [Suspect]
     Active Substance: LINEZOLID
     Indication: MENINGITIS STAPHYLOCOCCAL
     Dosage: 10 MILLIGRAM/KILOGRAM, TID, ADMINISTERED IN 1 H
     Route: 042

REACTIONS (1)
  - Electrocardiogram QT prolonged [Recovered/Resolved]
